FAERS Safety Report 8120686-8 (Version None)
Quarter: 2012Q1

REPORT INFORMATION
  Report Type: 
  Country: None (occurrence: None)
  Receive Date: 20120207
  Receipt Date: 20120125
  Transmission Date: 20120608
  Serious: Yes (Life-Threatening)
  Sender: FDA-Public Use
  Company Number: LT-ROCHE-1033822

PATIENT
  Sex: Male

DRUGS (4)
  1. CITALOPRAMUM [Concomitant]
  2. PEGASYS [Suspect]
     Indication: ILL-DEFINED DISORDER
     Route: 058
     Dates: start: 20110217, end: 20110929
  3. COPEGUS [Suspect]
     Indication: HEPATITIS C
     Route: 048
     Dates: start: 20110217, end: 20110929
  4. COPEGUS [Suspect]
     Indication: ILL-DEFINED DISORDER

REACTIONS (1)
  - NEOPLASM MALIGNANT [None]
